FAERS Safety Report 9454136 (Version 1)
Quarter: 2013Q3

REPORT INFORMATION
  Report Type: Spontaneous
  Country: US (occurrence: None)
  Receive Date: 20130809
  Receipt Date: 20130809
  Transmission Date: 20140515
  Serious: No
  Sender: FDA-Public Use
  Company Number: None

PATIENT
  Age: 43 Year
  Sex: Female
  Weight: 92.53 kg

DRUGS (1)
  1. CIPROFLOXACIN [Suspect]
     Indication: URINARY TRACT INFECTION
     Dosage: 1 PILL  TWICE DAILY  TAKEN BY MOUTH
     Route: 048
     Dates: start: 20130803, end: 20130805

REACTIONS (4)
  - Gait disturbance [None]
  - Pain [None]
  - Tendon pain [None]
  - Drug ineffective [None]
